APPROVED DRUG PRODUCT: QUINIDINE GLUCONATE
Active Ingredient: QUINIDINE GLUCONATE
Strength: 324MG
Dosage Form/Route: TABLET, EXTENDED RELEASE;ORAL
Application: A088431 | Product #001
Applicant: CYCLE PHARMACEUTICALS LTD
Approved: Jan 6, 1984 | RLD: No | RS: No | Type: DISCN